FAERS Safety Report 21860563 (Version 1)
Quarter: 2023Q1

REPORT INFORMATION
  Report Type: Spontaneous
  Country: US (occurrence: None)
  Receive Date: 20230113
  Receipt Date: 20230113
  Transmission Date: 20230418
  Serious: Yes (Other)
  Sender: FDA-Public Use
  Company Number: None

PATIENT
  Age: 64 Year
  Sex: Male

DRUGS (1)
  1. SUNITINIB [Suspect]
     Active Substance: SUNITINIB
     Dosage: FREQUENCY : DAILY;?
     Route: 048

REACTIONS (9)
  - Neuropathy peripheral [None]
  - Gait disturbance [None]
  - Balance disorder [None]
  - Pain [None]
  - Nausea [None]
  - Dizziness [None]
  - Hyperhidrosis [None]
  - Hypertension [None]
  - White blood cell count decreased [None]

NARRATIVE: CASE EVENT DATE: 20230113
